FAERS Safety Report 26110945 (Version 1)
Quarter: 2025Q4

REPORT INFORMATION
  Report Type: Report from Study
  Country: US (occurrence: US)
  Receive Date: 20251202
  Receipt Date: 20251202
  Transmission Date: 20260118
  Serious: Yes (Other)
  Sender: JOHNSON AND JOHNSON
  Company Number: US-JNJFOC-20251173578

PATIENT
  Age: 56 Year
  Sex: Female

DRUGS (4)
  1. SPRAVATO [Suspect]
     Active Substance: ESKETAMINE
     Indication: Depression
     Dosage: ?84 MG, 2 TOTAL DOSES?
     Route: 045
     Dates: start: 20251009, end: 20251017
  2. SPRAVATO [Suspect]
     Active Substance: ESKETAMINE
     Dosage: ?56 MG, 1 TOTAL DOSES?
     Route: 045
     Dates: start: 20251024, end: 20251024
  3. SPRAVATO [Suspect]
     Active Substance: ESKETAMINE
     Dosage: ?84 MG, 2 TOTAL DOSES?
     Route: 045
     Dates: start: 20251104, end: 20251104
  4. SPRAVATO [Suspect]
     Active Substance: ESKETAMINE
     Dosage: ?56 MG, 8 TOTAL DOSES?
     Route: 045
     Dates: start: 20250902, end: 20250925

REACTIONS (6)
  - Lower respiratory tract infection [Not Recovered/Not Resolved]
  - Surgery [Unknown]
  - Ankle fracture [Unknown]
  - Ligament sprain [Unknown]
  - Cystitis [Not Recovered/Not Resolved]
  - Laryngitis [Not Recovered/Not Resolved]

NARRATIVE: CASE EVENT DATE: 20250901
